FAERS Safety Report 7323471-X (Version None)
Quarter: 2011Q1

REPORT INFORMATION
  Report Type: 
  Country: None (occurrence: None)
  Receive Date: 20110201
  Receipt Date: 20101210
  Transmission Date: 20110831
  Serious: Yes (Hospitalization)
  Sender: FDA-Public Use
  Company Number: AMAG201000419

PATIENT
  Age: 82 Year
  Sex: Male
  Weight: 73 kg

DRUGS (11)
  1. DIOVAN [Concomitant]
  2. VITAMIN B COMPLEX CAP [Concomitant]
  3. CARDURA [Concomitant]
  4. SPIRIVA [Concomitant]
  5. METOPROLOL TARTRATE [Concomitant]
  6. PROCRIT [Concomitant]
  7. FERAHEME [Suspect]
     Indication: IRON DEFICIENCY ANAEMIA
     Dosage: 180 MG, SINGLE, INTRAVENOUS
     Route: 042
     Dates: start: 20101209, end: 20101209
  8. VITRON-C (ASCORBIC ACID, FERROUS FUMARATE) [Concomitant]
  9. AMLODIPINE [Concomitant]
  10. ISOSORBIDE (ISOSORBIDE) [Concomitant]
  11. CLONIDINE [Concomitant]

REACTIONS (9)
  - CHEST PAIN [None]
  - HYPERHIDROSIS [None]
  - WHEEZING [None]
  - ATRIAL FIBRILLATION [None]
  - DYSPNOEA [None]
  - HYPOTENSION [None]
  - HYPERSENSITIVITY [None]
  - BURNING SENSATION [None]
  - FEELING HOT [None]
